FAERS Safety Report 8051127-7 (Version None)
Quarter: 2012Q1

REPORT INFORMATION
  Report Type: 
  Country: None (occurrence: None)
  Receive Date: 20120117
  Receipt Date: 20120112
  Transmission Date: 20120608
  Serious: Yes (Death, Life-Threatening, Hospitalization, Other)
  Sender: FDA-Public Use
  Company Number: PHHY2011JP88167

PATIENT
  Sex: Male

DRUGS (31)
  1. TOFRANIL [Concomitant]
     Dosage: 10 MG, DAILY
     Route: 048
  2. LAXOBERON [Concomitant]
     Dosage: UNK UKN, UNK
     Dates: start: 20110929
  3. FUNGUARD [Concomitant]
     Dosage: 150 MG, UNK
     Dates: start: 20111002, end: 20111004
  4. GLYCYRRHIZIC ACID, AMMONIUM SALT [Concomitant]
     Dosage: 60 ML
     Dates: start: 20111005, end: 20111005
  5. LENDORMIN [Concomitant]
     Dosage: UNK UKN, UNK
     Route: 048
     Dates: start: 20111001
  6. DEXTROSE [Concomitant]
     Dosage: 500 ML
     Dates: start: 20111004
  7. TASIGNA [Suspect]
     Indication: CHRONIC MYELOID LEUKAEMIA
     Dosage: 150 MG, QD
     Route: 048
     Dates: start: 20111003, end: 20111003
  8. ZOLPIDEM [Concomitant]
     Dosage: 5 MG, DAILY
     Route: 048
     Dates: start: 20110927, end: 20111003
  9. MUCODYNE [Concomitant]
     Dosage: 1000 MG, DAILY
     Route: 048
  10. MUCODYNE [Concomitant]
     Dosage: 1500 MG, DAILY
     Route: 048
     Dates: start: 20111001
  11. PREDNISOLONE [Concomitant]
     Dosage: 60 MG, DAILY
     Dates: start: 20111002, end: 20111003
  12. SILECE [Concomitant]
     Dosage: 2 MG, DAILY
     Route: 048
     Dates: start: 20110927, end: 20111002
  13. HYDREA [Concomitant]
     Dosage: 1500 MG, DAILY
     Dates: start: 20111002, end: 20111003
  14. HEPARIN SODIUM [Concomitant]
     Dosage: 10000 IU, DAILY
     Dates: start: 20110927
  15. DEXTROSE [Concomitant]
     Dosage: 1000 ML
     Dates: end: 20111005
  16. PURSENNID [Concomitant]
     Dosage: UNK UKN, UNK
     Dates: start: 20110928
  17. HALCION [Concomitant]
     Dosage: 0.25 MG, DAILY
     Route: 048
     Dates: start: 20110927, end: 20111003
  18. HYDREA [Concomitant]
     Dosage: 1000 MG, DAILY
     Route: 048
     Dates: start: 20110928, end: 20111001
  19. BAKTAR [Concomitant]
     Dosage: 2 DF, DAILY
     Route: 048
     Dates: start: 20111002, end: 20111003
  20. PACIL [Concomitant]
     Dosage: 1000 MG, DAILY
     Dates: start: 20111002
  21. SEISHOKU [Concomitant]
     Dosage: 20 ML, DAILY
     Dates: start: 20111002
  22. SEISHOKU [Concomitant]
     Dosage: 10 ML, DAILY
  23. SEISHOKU [Concomitant]
     Dosage: 100 ML, DAILY
     Dates: start: 20111002, end: 20111004
  24. DEXALTIN [Concomitant]
     Dosage: UNK UKN, UNK
  25. ALLOPURINOL [Concomitant]
     Dosage: 200 MG, DAILY
     Route: 048
     Dates: start: 20110927, end: 20111003
  26. MAGNESIUM OXIDE [Concomitant]
     Dosage: 1 G, DAILY
     Route: 048
     Dates: start: 20111001
  27. MEILAX [Concomitant]
     Dosage: 1 MG, DAILY
     Route: 048
     Dates: start: 20110927
  28. MEILAX [Concomitant]
     Dosage: 1 MG, DAILY
  29. TOFRANIL [Concomitant]
     Dosage: 30 MG, DAILY
     Route: 048
     Dates: start: 20110927
  30. FAMOTIDINE [Concomitant]
     Dosage: 20 MG, DAILY
     Dates: start: 20110927, end: 20111003
  31. SODIUM CHLORIDE SOLUTION [Concomitant]
     Dosage: 500 MG, DAILY
     Dates: start: 20110927

REACTIONS (17)
  - ARTERIAL HAEMORRHAGE [None]
  - DISSEMINATED INTRAVASCULAR COAGULATION [None]
  - EMPHYSEMA [None]
  - DECREASED APPETITE [None]
  - HEPATITIS FULMINANT [None]
  - HYPERGLYCAEMIA [None]
  - JAUNDICE [None]
  - NAUSEA [None]
  - NEOPLASM MALIGNANT [None]
  - SUBCUTANEOUS HAEMATOMA [None]
  - ASCITES [None]
  - METABOLIC ACIDOSIS [None]
  - COAGULOPATHY [None]
  - COMA [None]
  - NEOPLASM PROGRESSION [None]
  - TUMOUR LYSIS SYNDROME [None]
  - ABDOMINAL PAIN UPPER [None]
